FAERS Safety Report 20838075 (Version 6)
Quarter: 2023Q1

REPORT INFORMATION
  Report Type: Other
  Country: FR (occurrence: FR)
  Receive Date: 20220517
  Receipt Date: 20230104
  Transmission Date: 20230418
  Serious: No
  Sender: FDA-Public Use
  Company Number: FR-TOLMAR, INC.-22FR033862

PATIENT
  Age: 44 Year
  Sex: Male
  Weight: 63 kg

DRUGS (5)
  1. ELIGARD [Suspect]
     Active Substance: LEUPROLIDE ACETATE
     Indication: Prostate cancer
     Dosage: 22.5 MILLIGRAM, Q 3 MONTH
     Dates: start: 20220106
  2. ELIGARD [Suspect]
     Active Substance: LEUPROLIDE ACETATE
     Dosage: 22.5 MILLIGRAM, Q 3 MONTH
     Dates: start: 20220406
  3. VITAMINS NOS [Concomitant]
     Active Substance: VITAMINS
     Indication: Product used for unknown indication
  4. CALCIUM [Concomitant]
     Active Substance: CALCIUM
     Indication: Product used for unknown indication
  5. UNSPECIFIED INGREDIENT [Concomitant]
     Active Substance: UNSPECIFIED INGREDIENT
     Indication: Blood cholesterol abnormal

REACTIONS (2)
  - Blood testosterone abnormal [Recovered/Resolved]
  - Drug ineffective [Recovered/Resolved]
